FAERS Safety Report 8453972-2 (Version None)
Quarter: 2012Q2

REPORT INFORMATION
  Report Type: 
  Country: None (occurrence: None)
  Receive Date: 20120620
  Receipt Date: 20120612
  Transmission Date: 20120825
  Serious: Yes (Hospitalization)
  Sender: FDA-Public Use
  Company Number: US-US-EMD SERONO, INC.-7080545

PATIENT
  Sex: Male

DRUGS (2)
  1. IBUPROPHEN [Concomitant]
     Indication: PRODUCT USED FOR UNKNOWN INDICATION
  2. REBIF [Suspect]
     Indication: MULTIPLE SCLEROSIS
     Route: 058
     Dates: start: 20060829

REACTIONS (4)
  - PULMONARY EMBOLISM [None]
  - MOBILITY DECREASED [None]
  - URINARY TRACT INFECTION [None]
  - MEMORY IMPAIRMENT [None]
